FAERS Safety Report 9318029 (Version 1)
Quarter: 2013Q1

REPORT INFORMATION
  Report Type: Spontaneous
  Country: DE (occurrence: None)
  Receive Date: 20121207
  Receipt Date: 20121207
  Transmission Date: 20140127
  Serious: Yes (Hospitalization)
  Sender: FDA-Public Use
  Company Number: ACO_32912_2012

PATIENT
  Age: 49 Year
  Sex: Male

DRUGS (3)
  1. FAMPYRA (DALFAMPRIDINE) TABLET, 10MG [Suspect]
     Indication: MULTIPLE SCLEROSIS
     Route: 048
     Dates: start: 20120801
  2. TOVIAZ (FESOTERODINE FUMARATE) [Concomitant]
  3. GILENYA (FINGOLIMOD HYDROCHLORIDE) [Concomitant]

REACTIONS (2)
  - Bradycardia [None]
  - Electrocardiogram QT prolonged [None]
